FAERS Safety Report 9275442 (Version 1)
Quarter: 2013Q1

REPORT INFORMATION
  Report Type: Spontaneous
  Country: US (occurrence: None)
  Receive Date: 20130308
  Receipt Date: 20130308
  Transmission Date: 20140127
  Serious: Yes (Other)
  Sender: FDA-Public Use
  Company Number: 54973 AE # 1266

PATIENT
  Age: 4 Year
  Sex: Male
  Weight: 15.88 kg

DRUGS (2)
  1. HERBALS [Suspect]
     Indication: NASOPHARYNGITIS
     Dosage: 1 TSP 2X/DAY X 2 DAYS
  2. CHILDREN^S IBUPROFEN [Concomitant]

REACTIONS (9)
  - Urticaria [None]
  - Lip swelling [None]
  - Inflammation [None]
  - Abasia [None]
  - Dysstasia [None]
  - Joint warmth [None]
  - Weight bearing difficulty [None]
  - Crying [None]
  - Infection [None]
